FAERS Safety Report 14349231 (Version 1)
Quarter: 2018Q1

REPORT INFORMATION
  Report Type: Spontaneous
  Country: FR (occurrence: FR)
  Receive Date: 20180104
  Receipt Date: 20180104
  Transmission Date: 20180509
  Serious: Yes (Hospitalization)
  Sender: FDA-Public Use
  Company Number: FR-CONCORDIA PHARMACEUTICALS INC.-E2B_00009271

PATIENT
  Age: 76 Year
  Sex: Male

DRUGS (3)
  1. SELOKEN L P 200 MG, COMPRIM? ? LIB?RATION PROLONG?E [Concomitant]
     Indication: HYPERTENSION
     Route: 048
     Dates: start: 201703
  2. DIGOXIN. [Suspect]
     Active Substance: DIGOXIN
     Indication: ATRIAL FLUTTER
     Route: 042
     Dates: start: 20171117, end: 20171121
  3. COUMADINE [Concomitant]
     Active Substance: WARFARIN SODIUM
     Indication: CEREBROVASCULAR ACCIDENT
     Route: 048
     Dates: start: 201703

REACTIONS (2)
  - Vomiting [Recovered/Resolved]
  - Cardioactive drug level increased [Recovered/Resolved]

NARRATIVE: CASE EVENT DATE: 20171119
